FAERS Safety Report 14656020 (Version 8)
Quarter: 2019Q1

REPORT INFORMATION
  Report Type: Spontaneous
  Country: ES (occurrence: ES)
  Receive Date: 20180319
  Receipt Date: 20190322
  Transmission Date: 20190417
  Serious: Yes (Death, Other)
  Sender: FDA-Public Use
  Company Number: ES-OTSUKA-2018_006739

PATIENT
  Age: 23 Year
  Sex: Male

DRUGS (25)
  1. PONATINIB [Suspect]
     Active Substance: PONATINIB
     Indication: ACUTE LYMPHOCYTIC LEUKAEMIA RECURRENT
     Dosage: UNK
     Route: 065
     Dates: start: 2014
  2. BUSULFAN. [Suspect]
     Active Substance: BUSULFAN
     Indication: ACUTE LYMPHOCYTIC LEUKAEMIA RECURRENT
     Dosage: UNK
     Route: 065
     Dates: start: 20140928
  3. DEXAMETHASONE. [Suspect]
     Active Substance: DEXAMETHASONE
     Indication: ACUTE LYMPHOCYTIC LEUKAEMIA RECURRENT
     Dosage: UNK
     Route: 065
     Dates: start: 2014
  4. DEXAMETHASONE. [Suspect]
     Active Substance: DEXAMETHASONE
     Dosage: UNK
     Route: 065
     Dates: start: 20140415
  5. PREDNISONE. [Concomitant]
     Active Substance: PREDNISONE
     Indication: ACUTE LYMPHOCYTIC LEUKAEMIA
     Dosage: UNK
     Route: 065
  6. PONATINIB [Suspect]
     Active Substance: PONATINIB
     Dosage: UNK
     Route: 065
     Dates: start: 2014
  7. METHOTREXATE SODIUM. [Suspect]
     Active Substance: METHOTREXATE SODIUM
     Dosage: UNK
     Route: 065
     Dates: start: 20140415
  8. IMATINIB. [Concomitant]
     Active Substance: IMATINIB MESYLATE
     Dosage: UNK
     Route: 065
  9. CYCLOPHOSPHAMIDE MONOHYDRATE [Concomitant]
     Active Substance: CYCLOPHOSPHAMIDE
     Dosage: UNK
     Route: 065
     Dates: start: 20140415
  10. GENOXAL [Suspect]
     Active Substance: CYCLOPHOSPHAMIDE
     Indication: ACUTE LYMPHOCYTIC LEUKAEMIA RECURRENT
     Dosage: UNK
     Route: 065
     Dates: start: 2014
  11. RITUXIMAB. [Suspect]
     Active Substance: RITUXIMAB
     Indication: PRODUCT USED FOR UNKNOWN INDICATION
     Dosage: UNK
     Route: 065
  12. CYTARABINE. [Suspect]
     Active Substance: CYTARABINE
     Dosage: UNK
     Route: 065
     Dates: start: 20140415
  13. VINCRISTINE SULFATE. [Suspect]
     Active Substance: VINCRISTINE SULFATE
     Indication: ACUTE LYMPHOCYTIC LEUKAEMIA RECURRENT
     Dosage: UNK
     Route: 065
     Dates: start: 2014
  14. DOXORUBICIN HYDROCHLORIDE. [Suspect]
     Active Substance: DOXORUBICIN HYDROCHLORIDE
     Indication: ACUTE LYMPHOCYTIC LEUKAEMIA RECURRENT
     Dosage: UNK
     Route: 065
     Dates: start: 2014
  15. GENOXAL [Suspect]
     Active Substance: CYCLOPHOSPHAMIDE
     Dosage: UNK
     Route: 065
     Dates: start: 20140415
  16. FLUDARABINE [Suspect]
     Active Substance: FLUDARABINE PHOSPHATE
     Indication: ACUTE LYMPHOCYTIC LEUKAEMIA RECURRENT
     Dosage: UNK
     Route: 065
     Dates: start: 20140928
  17. IMATINIB. [Concomitant]
     Active Substance: IMATINIB MESYLATE
     Indication: ACUTE LYMPHOCYTIC LEUKAEMIA
     Dosage: UNK
     Route: 065
  18. PONATINIB [Suspect]
     Active Substance: PONATINIB
     Dosage: 45 MG, QD
     Route: 048
     Dates: start: 20140415
  19. CYTARABINE. [Suspect]
     Active Substance: CYTARABINE
     Indication: ACUTE LYMPHOCYTIC LEUKAEMIA RECURRENT
     Dosage: UNK
     Route: 065
     Dates: start: 2014
  20. VINCRISTINE SULFATE. [Suspect]
     Active Substance: VINCRISTINE SULFATE
     Dosage: UNK
     Route: 065
     Dates: start: 20140415
  21. DOXORUBICIN HYDROCHLORIDE. [Suspect]
     Active Substance: DOXORUBICIN HYDROCHLORIDE
     Dosage: UNK
     Route: 065
     Dates: start: 20140415
  22. METHOTREXATE SODIUM. [Suspect]
     Active Substance: METHOTREXATE SODIUM
     Indication: ACUTE LYMPHOCYTIC LEUKAEMIA RECURRENT
     Dosage: UNK
     Route: 065
     Dates: start: 2014
  23. THIOTEPA. [Suspect]
     Active Substance: THIOTEPA
     Indication: ACUTE LYMPHOCYTIC LEUKAEMIA RECURRENT
     Dosage: UNK
     Route: 065
     Dates: start: 20140928
  24. MERCAPTOPURINE. [Concomitant]
     Active Substance: MERCAPTOPURINE
     Indication: ACUTE LYMPHOCYTIC LEUKAEMIA
     Dosage: UNK
     Route: 065
  25. CYCLOPHOSPHAMIDE MONOHYDRATE [Concomitant]
     Active Substance: CYCLOPHOSPHAMIDE
     Indication: BONE MARROW CONDITIONING REGIMEN
     Dosage: UNK
     Route: 065
     Dates: start: 2014

REACTIONS (6)
  - Autoimmune lymphoproliferative syndrome [Unknown]
  - Cytomegalovirus infection [Unknown]
  - Post transplant lymphoproliferative disorder [Recovered/Resolved]
  - Acute lymphocytic leukaemia recurrent [Unknown]
  - Epstein-Barr virus infection [Recovered/Resolved]
  - Viral haemorrhagic cystitis [Unknown]

NARRATIVE: CASE EVENT DATE: 2014
